FAERS Safety Report 18820306 (Version 1)
Quarter: 2021Q1

REPORT INFORMATION
  Report Type: Spontaneous
  Country: US (occurrence: US)
  Receive Date: 20210201
  Receipt Date: 20210201
  Transmission Date: 20210419
  Serious: Yes (Other)
  Sender: FDA-Public Use
  Company Number: None

PATIENT
  Age: 51 Year
  Sex: Male

DRUGS (58)
  1. BACLOFEN. [Concomitant]
     Active Substance: BACLOFEN
  2. DEXMEDETOMIDINE. [Concomitant]
     Active Substance: DEXMEDETOMIDINE
  3. FLUCONAZOLE. [Concomitant]
     Active Substance: FLUCONAZOLE
  4. FOLIC ACID. [Concomitant]
     Active Substance: FOLIC ACID
  5. FUROSEMIDE. [Concomitant]
     Active Substance: FUROSEMIDE
  6. BIO?K [Concomitant]
  7. SODIUM CHLORIDE 0.9% [Concomitant]
     Active Substance: SODIUM CHLORIDE
  8. PROSOURCE PKT PEG TUBE [Concomitant]
  9. LACTATED RINGERS AND DEXTROSE SOLUTION [Concomitant]
     Active Substance: CALCIUM CHLORIDE\DEXTROSE\DEXTROSE MONOHYDRATE\POTASSIUM CHLORIDE\SODIUM CHLORIDE\SODIUM LACTATE
  10. KETOROLAC [Concomitant]
     Active Substance: KETOROLAC TROMETHAMINE
  11. MAGNESIUM SULFATE. [Concomitant]
     Active Substance: MAGNESIUM SULFATE
  12. AZTREONAM. [Concomitant]
     Active Substance: AZTREONAM
  13. BENADRYL [Concomitant]
     Active Substance: DIPHENHYDRAMINE HYDROCHLORIDE
  14. FENTANYL. [Concomitant]
     Active Substance: FENTANYL
  15. DILAUDID [Concomitant]
     Active Substance: HYDROMORPHONE HYDROCHLORIDE
  16. INSULIN LISPRO [Concomitant]
     Active Substance: INSULIN LISPRO
  17. LINEZOLID. [Concomitant]
     Active Substance: LINEZOLID
  18. MELATONIN [Concomitant]
     Active Substance: MELATONIN
  19. MIDODRINE [Concomitant]
     Active Substance: MIDODRINE
  20. PANTOPRAZOLE [Concomitant]
     Active Substance: PANTOPRAZOLE
  21. PREGABALIN. [Concomitant]
     Active Substance: PREGABALIN
  22. CHLORHEXIDINE GLUCONATE ORAL RINSE, 0.12% [Suspect]
     Active Substance: CHLORHEXIDINE GLUCONATE
     Indication: PNEUMONIA
     Dosage: ?          OTHER ROUTE:SWISH AND SPIT?
     Route: 048
     Dates: start: 20200930, end: 20201012
  23. BUSPIRONE [Concomitant]
     Active Substance: BUSPIRONE HYDROCHLORIDE
  24. D5NS [Concomitant]
  25. FAMOTIDINE. [Concomitant]
     Active Substance: FAMOTIDINE
  26. MEDIHONEY GEL [Concomitant]
  27. TRIAD PASTE [Concomitant]
  28. DUO?NEB [Concomitant]
  29. NOREPINEPHRINE. [Concomitant]
     Active Substance: NOREPINEPHRINE
  30. OLANZAPINE. [Concomitant]
     Active Substance: OLANZAPINE
  31. ONDANSETRON [Concomitant]
     Active Substance: ONDANSETRON
  32. ACETAMINOPHEN. [Concomitant]
     Active Substance: ACETAMINOPHEN
  33. GUAIFENESIN. [Concomitant]
     Active Substance: GUAIFENESIN
  34. INSULIN GLARGINE [Concomitant]
     Active Substance: INSULIN GLARGINE
  35. POTASSIUM PHOSPHATE [Concomitant]
     Active Substance: POTASSIUM PHOSPHATE
  36. PROPOFOL. [Concomitant]
     Active Substance: PROPOFOL
  37. SODIUM BICARBONATE 5% [Concomitant]
  38. HEPARIN SODIUM, PORCINE [Concomitant]
     Active Substance: HEPARIN SODIUM
  39. HYDROCORTISONE. [Concomitant]
     Active Substance: HYDROCORTISONE
  40. LACTATED RINGERS SOLUTION [Concomitant]
     Active Substance: CALCIUM CHLORIDE\POTASSIUM CHLORIDE\SODIUM CHLORIDE\SODIUM LACTATE
  41. METRONIDAZOLE. [Concomitant]
     Active Substance: METRONIDAZOLE
  42. ZOSYN [Concomitant]
     Active Substance: PIPERACILLIN SODIUM\TAZOBACTAM SODIUM
  43. ROCURONIUM [Concomitant]
     Active Substance: ROCURONIUM BROMIDE
  44. ALBUMIN [Concomitant]
     Active Substance: ALBUMIN HUMAN
  45. BUPIVACAINE. [Concomitant]
     Active Substance: BUPIVACAINE
  46. ENOXAPARIN [Concomitant]
     Active Substance: ENOXAPARIN
  47. FONDAPARINUX SC [Concomitant]
  48. HALOPERIDOL. [Concomitant]
     Active Substance: HALOPERIDOL
  49. OMNIPAQUE [Concomitant]
     Active Substance: IOHEXOL
  50. 3?IN?1 PARENTERAL NUTRITION [Concomitant]
  51. CEFEPIME [Concomitant]
     Active Substance: CEFEPIME HYDROCHLORIDE
  52. INSULIN REGULAR HUMAN IV [Concomitant]
  53. MIRALAX [Concomitant]
     Active Substance: POLYETHYLENE GLYCOL 3350
  54. EFFER K TAB [Concomitant]
  55. POTASSIUM CHLORIDE. [Concomitant]
     Active Substance: POTASSIUM CHLORIDE
  56. NORMAL SALINE [Concomitant]
     Active Substance: SODIUM CHLORIDE
  57. BICITRA SOLN [Concomitant]
  58. TISSEEL VHSD [Concomitant]

REACTIONS (9)
  - Pyelonephritis [None]
  - Urosepsis [None]
  - Suspected transmission of an infectious agent via product [None]
  - Stag horn calculus [None]
  - Pneumonia staphylococcal [None]
  - Klebsiella test positive [None]
  - Mycobacterium test positive [None]
  - Renal failure [None]
  - Burkholderia test positive [None]

NARRATIVE: CASE EVENT DATE: 20201011
